FAERS Safety Report 5758233-8 (Version None)
Quarter: 2008Q2

REPORT INFORMATION
  Report Type: 
  Country: None (occurrence: None)
  Receive Date: 20080604
  Receipt Date: 20080523
  Transmission Date: 20081010
  Serious: Yes (Hospitalization)
  Sender: FDA-Public Use
  Company Number: DE-ELI_LILLY_AND_COMPANY-DE200805000250

PATIENT
  Sex: Female
  Weight: 66 kg

DRUGS (7)
  1. GEMCITABINE HCL [Suspect]
     Indication: NON-SMALL CELL LUNG CANCER
     Dosage: 2076 MG, UNKNOWN
     Route: 042
     Dates: start: 20080213
  2. CETUXIMAB [Suspect]
     Indication: NON-SMALL CELL LUNG CANCER
     Dosage: 250 MG/M2 (432.5MG), UNKNOWN
     Route: 042
     Dates: start: 20080213
  3. CARBOPLATIN [Suspect]
     Indication: NON-SMALL CELL LUNG CANCER
     Dosage: 59.99 MG (AUC 5), UNK
     Route: 042
     Dates: start: 20080213
  4. BETAMETHASONE [Concomitant]
     Indication: OEDEMA
     Dosage: 5 MG, UNKNOWN
     Route: 065
     Dates: start: 20080129
  5. OMEPRAZOLE [Concomitant]
     Indication: PROPHYLAXIS
     Dosage: 20 MG, UNKNOWN
     Route: 065
     Dates: start: 20080124
  6. EUTHYROX [Concomitant]
     Indication: THYROID DISORDER
     Dosage: 100 UG, UNKNOWN
     Route: 065
  7. OXIS /00958001/ [Concomitant]
     Dosage: 12 UG, UNKNOWN
     Route: 065
     Dates: start: 20080125

REACTIONS (2)
  - ABSCESS ORAL [None]
  - SIALOADENITIS [None]
